FAERS Safety Report 4460091-9 (Version None)
Quarter: 2004Q3

REPORT INFORMATION
  Report Type: 
  Country: None (occurrence: None)
  Receive Date: 20040928
  Receipt Date: 20031204
  Transmission Date: 20050211
  Serious: No
  Sender: FDA-Public Use
  Company Number: US-GLAXOSMITHKLINE-A0442030A

PATIENT
  Age: 41 Year
  Sex: Female

DRUGS (10)
  1. SEREVENT [Suspect]
     Indication: ASTHMA
     Dosage: 50MCG TWICE PER DAY
     Route: 055
     Dates: start: 20031025, end: 20031101
  2. SINGULAIR [Concomitant]
  3. CLARITIN [Concomitant]
  4. BENADRYL [Concomitant]
  5. NASACORT AQ [Concomitant]
  6. GLUCOPHAGE [Concomitant]
  7. GLIPIZIDE [Concomitant]
  8. MONOPRIL [Concomitant]
  9. VITAMIN B COMPLEX CAP [Concomitant]
  10. MULTI-VITAMIN [Concomitant]

REACTIONS (2)
  - DYSPNOEA [None]
  - RESPIRATORY TRACT IRRITATION [None]
